FAERS Safety Report 4557349-1 (Version None)
Quarter: 2005Q1

REPORT INFORMATION
  Report Type: 
  Country: None (occurrence: None)
  Receive Date: 20050119
  Receipt Date: 20050119
  Transmission Date: 20050727
  Serious: Yes (Other)
  Sender: FDA-Public Use
  Company Number: None

PATIENT
  Age: 17 Year
  Sex: Female
  Weight: 65.7716 kg

DRUGS (4)
  1. AMNESTEEM [Suspect]
     Indication: ACNE
     Dosage: 40 MG QD   ORAL
     Route: 048
     Dates: start: 20040102, end: 20040227
  2. ACCUTANE [Suspect]
     Indication: ACNE
     Dosage: 40MG QD   40QOD/80 QOD   ORAL
     Route: 048
     Dates: start: 20040227, end: 20040331
  3. ORTHO TRI-CYCLEN [Concomitant]
  4. SPRINTEC [Concomitant]

REACTIONS (12)
  - ACNE [None]
  - AGITATION [None]
  - DECREASED ACTIVITY [None]
  - DEPRESSION [None]
  - DISEASE RECURRENCE [None]
  - DISTURBANCE IN ATTENTION [None]
  - DRUG INEFFECTIVE [None]
  - EDUCATIONAL PROBLEM [None]
  - IRRITABILITY [None]
  - SCHOOL REFUSAL [None]
  - SOCIAL AVOIDANT BEHAVIOUR [None]
  - STARING [None]
